FAERS Safety Report 6227493-1 (Version None)
Quarter: 2009Q2

REPORT INFORMATION
  Report Type: 
  Country: None (occurrence: None)
  Receive Date: 20090612
  Receipt Date: 20090603
  Transmission Date: 20091009
  Serious: Yes (Other)
  Sender: FDA-Public Use
  Company Number: PHHY2009FR18839

PATIENT
  Sex: Female
  Weight: 65 kg

DRUGS (5)
  1. ACLASTA [Suspect]
     Indication: OSTEOPOROSIS
     Dosage: 5 MG, UNK
     Dates: start: 20090323
  2. ACLASTA [Suspect]
     Indication: FRACTURE
  3. METFORMIN HCL [Concomitant]
     Indication: DIABETES MELLITUS
     Route: 048
  4. TRIATEC [Concomitant]
     Indication: HYPERTENSION
     Route: 048
  5. LASIX [Concomitant]
     Indication: HYPERTENSION
     Route: 048

REACTIONS (4)
  - INFLUENZA LIKE ILLNESS [None]
  - MYODESOPSIA [None]
  - PRODUCTIVE COUGH [None]
  - VITREOUS DETACHMENT [None]
